FAERS Safety Report 9256763 (Version 1)
Quarter: 2013Q2

REPORT INFORMATION
  Report Type: Spontaneous
  Country: US (occurrence: US)
  Receive Date: 20130426
  Receipt Date: 20130426
  Transmission Date: 20140414
  Serious: No
  Sender: FDA-Public Use
  Company Number: US-ASTRAZENECA-2013SE25435

PATIENT
  Sex: Female

DRUGS (1)
  1. ZOMIG [Suspect]
     Indication: MIGRAINE
     Dosage: 2.5 MG TABLET, AT ONSET, MAY REPEAT AFTER 2 HOURS. MAX 2/DAY
     Route: 048

REACTIONS (2)
  - Headache [Unknown]
  - Drug dose omission [Unknown]
